FAERS Safety Report 16921196 (Version 1)
Quarter: 2019Q4

REPORT INFORMATION
  Report Type: Spontaneous
  Country: US (occurrence: US)
  Receive Date: 20191015
  Receipt Date: 20191015
  Transmission Date: 20200122
  Serious: Yes (Other)
  Sender: FDA-Public Use
  Company Number: US-PURDUE-USA-2019-0148667

PATIENT
  Sex: Female

DRUGS (118)
  1. OXYCODONE HYDROCHLORIDE (SIMILAR TO NDA 22-272) [Suspect]
     Active Substance: OXYCODONE HYDROCHLORIDE
     Dosage: 15 MG, Q3H
     Route: 048
     Dates: start: 20080107
  2. OXYCODONE HYDROCHLORIDE (SIMILAR TO NDA 22-272) [Suspect]
     Active Substance: OXYCODONE HYDROCHLORIDE
     Dosage: 30 MG, 1-3 TABS EVERY 2 HRS
     Route: 048
     Dates: start: 20081125
  3. MS CONTIN [Suspect]
     Active Substance: MORPHINE SULFATE
     Dosage: 60 MG, UNK
     Route: 048
     Dates: start: 20071029
  4. MS CONTIN [Suspect]
     Active Substance: MORPHINE SULFATE
     Dosage: 60 MG, Q6H
     Route: 048
     Dates: start: 20071123
  5. OXYCONTIN [Suspect]
     Active Substance: OXYCODONE HYDROCHLORIDE
     Indication: PRODUCT USED FOR UNKNOWN INDICATION
     Dosage: 40 MG, BID
     Route: 048
     Dates: start: 20070521
  6. OXYCONTIN [Suspect]
     Active Substance: OXYCODONE HYDROCHLORIDE
     Dosage: 60 MG, TID
     Route: 048
     Dates: start: 20090202
  7. ULTRAM [Concomitant]
     Active Substance: TRAMADOL HYDROCHLORIDE
     Dosage: 50 MG, 1-2 TAB EVERY 4 HRS
     Route: 065
     Dates: start: 20071015
  8. ULTRAM [Concomitant]
     Active Substance: TRAMADOL HYDROCHLORIDE
     Dosage: 50 MG, Q4H
     Route: 065
     Dates: start: 20090226
  9. HALCION [Concomitant]
     Active Substance: TRIAZOLAM
     Dosage: 0.125 MG, 1-2 AT HS
     Route: 065
     Dates: start: 20090218
  10. VALIUM [Concomitant]
     Active Substance: DIAZEPAM
     Dosage: 10 MG, ONE TAB EVERY 8 HRS
     Route: 065
     Dates: start: 20170528
  11. VALIUM [Concomitant]
     Active Substance: DIAZEPAM
     Dosage: 10 MG, 1 TAB EVERY 8 HRS
     Route: 065
     Dates: start: 20070709
  12. MSIR [Concomitant]
     Active Substance: MORPHINE SULFATE
     Dosage: 30 MG, Q3- 4H
     Route: 065
     Dates: start: 20090316
  13. RELAFEN [Concomitant]
     Active Substance: NABUMETONE
     Indication: PRODUCT USED FOR UNKNOWN INDICATION
     Dosage: 500 MG, BID
     Route: 065
     Dates: start: 20070626
  14. ZANTAC [Concomitant]
     Active Substance: RANITIDINE HYDROCHLORIDE
     Indication: PRODUCT USED FOR UNKNOWN INDICATION
     Dosage: 300 MG, UNK
     Route: 065
     Dates: start: 20070802
  15. ATIVAN [Concomitant]
     Active Substance: LORAZEPAM
     Indication: PRODUCT USED FOR UNKNOWN INDICATION
     Dosage: 1 MG, TID
     Route: 065
     Dates: start: 20090316
  16. KAPIDEX [Concomitant]
     Active Substance: DEXLANSOPRAZOLE
     Indication: PRODUCT USED FOR UNKNOWN INDICATION
     Dosage: 60 MG, UNK
     Route: 065
     Dates: start: 20090617
  17. OXYCODONE HYDROCHLORIDE (SIMILAR TO NDA 22-272) [Suspect]
     Active Substance: OXYCODONE HYDROCHLORIDE
     Dosage: 15 MG, Q3H
     Route: 048
     Dates: start: 20071221
  18. OXYCODONE HYDROCHLORIDE (SIMILAR TO NDA 22-272) [Suspect]
     Active Substance: OXYCODONE HYDROCHLORIDE
     Dosage: 30 MG, Q3H
     Route: 048
     Dates: start: 20080128
  19. OXYCODONE HYDROCHLORIDE (SIMILAR TO NDA 22-272) [Suspect]
     Active Substance: OXYCODONE HYDROCHLORIDE
     Dosage: 30 MG, Q3H
     Route: 048
     Dates: start: 20080225
  20. OXYCODONE HYDROCHLORIDE (SIMILAR TO NDA 22-272) [Suspect]
     Active Substance: OXYCODONE HYDROCHLORIDE
     Dosage: 30 MG, Q3H
     Route: 048
     Dates: start: 20080623
  21. MS CONTIN [Suspect]
     Active Substance: MORPHINE SULFATE
     Dosage: 60 MG, 1 TAB EVERY 8 HRS
     Route: 048
     Dates: start: 20071002
  22. OXYCONTIN [Suspect]
     Active Substance: OXYCODONE HYDROCHLORIDE
     Dosage: 80 MG, TID
     Route: 048
     Dates: start: 20081125
  23. OXYCONTIN [Suspect]
     Active Substance: OXYCODONE HYDROCHLORIDE
     Dosage: 80 MG, TID
     Route: 048
     Dates: start: 20090218
  24. ULTRAM [Concomitant]
     Active Substance: TRAMADOL HYDROCHLORIDE
     Dosage: 50 MG, 1-2 TABS EVERY 4 HRS
     Route: 065
     Dates: start: 20071002
  25. VALIUM [Concomitant]
     Active Substance: DIAZEPAM
     Indication: PRODUCT USED FOR UNKNOWN INDICATION
     Dosage: 10 MG, ONE TAB EVERY 8 HRS
     Route: 065
     Dates: start: 20070521
  26. VALIUM [Concomitant]
     Active Substance: DIAZEPAM
     Dosage: 10 MG, ONE TAB EVERY 8 HRS
     Route: 065
     Dates: start: 20070620
  27. VALIUM [Concomitant]
     Active Substance: DIAZEPAM
     Dosage: 5 MG, QID
     Route: 065
     Dates: start: 20090423
  28. MSIR [Concomitant]
     Active Substance: MORPHINE SULFATE
     Dosage: 30 MG, 2-4 TABS ONE OUNCE COLD CREAM
     Route: 061
     Dates: start: 20081125
  29. FIORICET [Concomitant]
     Active Substance: ACETAMINOPHEN\BUTALBITAL\CAFFEINE
     Dosage: UNK, 1-2 TABS EVERY 4 HRS
     Route: 065
     Dates: start: 20071002
  30. OXYCODONE HYDROCHLORIDE (SIMILAR TO NDA 22-272) [Suspect]
     Active Substance: OXYCODONE HYDROCHLORIDE
     Dosage: 5 UNK, 1-2 TAB EVERY 3 HRS
     Route: 048
     Dates: start: 20070509
  31. OXYCODONE HYDROCHLORIDE (SIMILAR TO NDA 22-272) [Suspect]
     Active Substance: OXYCODONE HYDROCHLORIDE
     Dosage: 15 MG, Q3H
     Route: 048
     Dates: start: 20080225
  32. OXYCODONE HYDROCHLORIDE (SIMILAR TO NDA 22-272) [Suspect]
     Active Substance: OXYCODONE HYDROCHLORIDE
     Dosage: 30 MG, Q3H
     Route: 048
     Dates: start: 20080715
  33. OXYCODONE HYDROCHLORIDE (SIMILAR TO NDA 22-272) [Suspect]
     Active Substance: OXYCODONE HYDROCHLORIDE
     Dosage: 30 MG, Q3H
     Route: 048
     Dates: start: 20080812
  34. MS CONTIN [Suspect]
     Active Substance: MORPHINE SULFATE
     Dosage: 100 MG, UNK
     Route: 048
     Dates: start: 20070528
  35. MS CONTIN [Suspect]
     Active Substance: MORPHINE SULFATE
     Dosage: 100 MG, QID
     Route: 048
     Dates: start: 20070709
  36. MS CONTIN [Suspect]
     Active Substance: MORPHINE SULFATE
     Dosage: 30 MG, EVERY 8 HRS
     Route: 048
     Dates: start: 20071002
  37. MS CONTIN [Suspect]
     Active Substance: MORPHINE SULFATE
     Dosage: 100 MG, Q6H
     Route: 048
     Dates: start: 20080114
  38. MS CONTIN [Suspect]
     Active Substance: MORPHINE SULFATE
     Dosage: 100 MG, Q3H
     Route: 048
     Dates: start: 20080121
  39. OXYCONTIN [Suspect]
     Active Substance: OXYCODONE HYDROCHLORIDE
     Dosage: 60 MG, TID
     Route: 048
     Dates: start: 20090112
  40. DILAUDID [Suspect]
     Active Substance: HYDROMORPHONE HYDROCHLORIDE
     Indication: PRODUCT USED FOR UNKNOWN INDICATION
     Dosage: 8 MG, Q3- 4H
     Route: 048
     Dates: start: 20090218
  41. ULTRAM [Concomitant]
     Active Substance: TRAMADOL HYDROCHLORIDE
     Dosage: 50 MG, Q4H
     Route: 065
     Dates: start: 20071123
  42. LAMICTAL [Concomitant]
     Active Substance: LAMOTRIGINE
     Indication: PRODUCT USED FOR UNKNOWN INDICATION
     Dosage: 200 MG, UNK
     Route: 065
     Dates: start: 20070427
  43. MSIR [Concomitant]
     Active Substance: MORPHINE SULFATE
     Dosage: 30 MG, Q3- 4H
     Route: 065
     Dates: start: 20090218
  44. RELAFEN [Concomitant]
     Active Substance: NABUMETONE
     Dosage: 500 MG, UNK
     Route: 065
     Dates: start: 20071002
  45. PREDNISONE. [Concomitant]
     Active Substance: PREDNISONE
     Indication: PRODUCT USED FOR UNKNOWN INDICATION
     Dosage: UNK
     Route: 065
     Dates: start: 20070709
  46. GLUCOPHAGE [Concomitant]
     Active Substance: METFORMIN HYDROCHLORIDE
     Indication: PRODUCT USED FOR UNKNOWN INDICATION
     Dosage: 500 MG, UNK
     Route: 065
  47. OXYCODONE HYDROCHLORIDE (SIMILAR TO NDA 22-272) [Suspect]
     Active Substance: OXYCODONE HYDROCHLORIDE
     Indication: PRODUCT USED FOR UNKNOWN INDICATION
     Dosage: 5 MG, 1-2 TAB EVERY 3 HRS
     Route: 048
     Dates: start: 20070412
  48. OXYCODONE HYDROCHLORIDE (SIMILAR TO NDA 22-272) [Suspect]
     Active Substance: OXYCODONE HYDROCHLORIDE
     Dosage: 30 MG, Q3H
     Route: 048
     Dates: start: 20080114
  49. OXYCODONE HYDROCHLORIDE (SIMILAR TO NDA 22-272) [Suspect]
     Active Substance: OXYCODONE HYDROCHLORIDE
     Dosage: 30 MG, Q3H
     Route: 048
     Dates: start: 20080305
  50. OXYCODONE HYDROCHLORIDE (SIMILAR TO NDA 22-272) [Suspect]
     Active Substance: OXYCODONE HYDROCHLORIDE
     Dosage: 30 MG, Q3H
     Route: 048
     Dates: start: 20080909
  51. ULTRAM [Concomitant]
     Active Substance: TRAMADOL HYDROCHLORIDE
     Indication: PRODUCT USED FOR UNKNOWN INDICATION
     Dosage: 50 MG, 1-2 TAB 4TIMES A DAY
     Route: 065
     Dates: start: 20070420
  52. ULTRAM [Concomitant]
     Active Substance: TRAMADOL HYDROCHLORIDE
     Dosage: 50 MG, Q4H
     Route: 065
     Dates: start: 20080317
  53. ULTRAM [Concomitant]
     Active Substance: TRAMADOL HYDROCHLORIDE
     Dosage: 50 MG, UNK
     Route: 065
     Dates: start: 20081230
  54. ULTRAM [Concomitant]
     Active Substance: TRAMADOL HYDROCHLORIDE
     Dosage: 50 MG, Q4H
     Route: 065
     Dates: start: 20090202
  55. ULTRAM [Concomitant]
     Active Substance: TRAMADOL HYDROCHLORIDE
     Dosage: 50 MG, UNK
     Route: 065
     Dates: start: 20090902
  56. MSIR [Concomitant]
     Active Substance: MORPHINE SULFATE
     Dosage: 30 MG, 3 TABS EVERY 3 HRS
     Route: 065
     Dates: start: 20070709
  57. MSIR [Concomitant]
     Active Substance: MORPHINE SULFATE
     Dosage: 30 MG, 2-4 TABS IN ONE OUNCE OF COLD CREAM
     Route: 061
     Dates: start: 20081219
  58. FENTANYL. [Concomitant]
     Active Substance: FENTANYL
     Dosage: 75 MCG, PER HR
     Route: 062
     Dates: start: 20090112
  59. KAPIDEX [Concomitant]
     Active Substance: DEXLANSOPRAZOLE
     Dosage: 60 MG, UNK
     Route: 065
     Dates: start: 20090911
  60. CLONAZEPAM. [Concomitant]
     Active Substance: CLONAZEPAM
     Indication: PRODUCT USED FOR UNKNOWN INDICATION
     Dosage: 1 MG, EVERY HS
     Route: 065
     Dates: start: 20090731
  61. SERTRALINE [Concomitant]
     Active Substance: SERTRALINE HYDROCHLORIDE
     Indication: PRODUCT USED FOR UNKNOWN INDICATION
     Dosage: 100 MG, UNK
     Route: 065
     Dates: start: 20090911
  62. OXYCODONE HYDROCHLORIDE (SIMILAR TO NDA 22-272) [Suspect]
     Active Substance: OXYCODONE HYDROCHLORIDE
     Dosage: 15 MG, 1-2 TAB EVERY 3 HRS
     Route: 048
     Dates: start: 20070521
  63. OXYCODONE HYDROCHLORIDE (SIMILAR TO NDA 22-272) [Suspect]
     Active Substance: OXYCODONE HYDROCHLORIDE
     Dosage: 30 MG, Q2H
     Route: 048
     Dates: start: 20081007
  64. OXYCODONE HYDROCHLORIDE (SIMILAR TO NDA 22-272) [Suspect]
     Active Substance: OXYCODONE HYDROCHLORIDE
     Dosage: 30 MG, Q2H
     Route: 048
     Dates: start: 20090115
  65. OXYCODONE HYDROCHLORIDE (SIMILAR TO NDA 22-272) [Suspect]
     Active Substance: OXYCODONE HYDROCHLORIDE
     Dosage: 30 MG, Q2H
     Route: 048
     Dates: start: 20090304
  66. MS CONTIN [Suspect]
     Active Substance: MORPHINE SULFATE
     Dosage: 100 MG, TID
     Route: 048
     Dates: start: 20070620
  67. MS CONTIN [Suspect]
     Active Substance: MORPHINE SULFATE
     Dosage: 60 MG, 1 TAB EVERY 8 HRS
     Route: 048
     Dates: start: 20071016
  68. MS CONTIN [Suspect]
     Active Substance: MORPHINE SULFATE
     Dosage: 100 MG, Q3H
     Route: 048
     Dates: start: 20080128
  69. MS CONTIN [Suspect]
     Active Substance: MORPHINE SULFATE
     Dosage: 60 MG, Q6H
     Route: 048
     Dates: start: 20080225
  70. OXYCONTIN [Suspect]
     Active Substance: OXYCODONE HYDROCHLORIDE
     Dosage: 80 MG, TID
     Route: 048
     Dates: start: 20080909
  71. OXYCONTIN [Suspect]
     Active Substance: OXYCODONE HYDROCHLORIDE
     Dosage: 80 MG, TID
     Route: 048
     Dates: start: 20081007
  72. ULTRAM [Concomitant]
     Active Substance: TRAMADOL HYDROCHLORIDE
     Dosage: 50 MG, 1-2 TABS EVERY 4 HRS
     Route: 065
     Dates: start: 20070724
  73. ULTRAM [Concomitant]
     Active Substance: TRAMADOL HYDROCHLORIDE
     Dosage: 50 MG, Q4H
     Route: 065
     Dates: start: 20080225
  74. FIORICET [Concomitant]
     Active Substance: ACETAMINOPHEN\BUTALBITAL\CAFFEINE
     Indication: PRODUCT USED FOR UNKNOWN INDICATION
     Dosage: 325 MG, EVERY 1-2 TAB EVERY 4 HRS
     Route: 065
     Dates: start: 20070809
  75. DIAZEPAM. [Concomitant]
     Active Substance: DIAZEPAM
     Indication: PRODUCT USED FOR UNKNOWN INDICATION
     Dosage: 10 MG, BID
     Route: 065
     Dates: start: 20090701
  76. CLONAZEPAM. [Concomitant]
     Active Substance: CLONAZEPAM
     Dosage: 1 MG, UNK
     Route: 065
     Dates: start: 20090901
  77. OXYCODONE HYDROCHLORIDE (SIMILAR TO NDA 22-272) [Suspect]
     Active Substance: OXYCODONE HYDROCHLORIDE
     Dosage: 30 MG, 1-2 TAB EVERY 3 HRS
     Route: 048
     Dates: start: 20070620
  78. OXYCODONE HYDROCHLORIDE (SIMILAR TO NDA 22-272) [Suspect]
     Active Substance: OXYCODONE HYDROCHLORIDE
     Dosage: 30 MG, 3 TABS EVERY 3 HRS
     Route: 048
     Dates: start: 20190709
  79. OXYCODONE HYDROCHLORIDE (SIMILAR TO NDA 22-272) [Suspect]
     Active Substance: OXYCODONE HYDROCHLORIDE
     Dosage: 30 MG, Q3H
     Route: 048
     Dates: start: 20080121
  80. OXYCODONE HYDROCHLORIDE (SIMILAR TO NDA 22-272) [Suspect]
     Active Substance: OXYCODONE HYDROCHLORIDE
     Dosage: 30 MG, Q3H
     Route: 048
     Dates: start: 20080317
  81. OXYCODONE HYDROCHLORIDE (SIMILAR TO NDA 22-272) [Suspect]
     Active Substance: OXYCODONE HYDROCHLORIDE
     Dosage: 30 MG, Q3H
     Route: 048
     Dates: start: 20080609
  82. MS CONTIN [Suspect]
     Active Substance: MORPHINE SULFATE
     Dosage: 100 MG, Q6H
     Route: 048
     Dates: start: 20080107
  83. MS CONTIN [Suspect]
     Active Substance: MORPHINE SULFATE
     Dosage: 100 MG, Q3H
     Route: 048
     Dates: start: 20080305
  84. OXYCONTIN [Suspect]
     Active Substance: OXYCODONE HYDROCHLORIDE
     Dosage: 80 MG, TID
     Route: 048
     Dates: start: 20080512
  85. OXYCONTIN [Suspect]
     Active Substance: OXYCODONE HYDROCHLORIDE
     Dosage: 80 MG, TID
     Route: 048
     Dates: start: 20081219
  86. ULTRAM [Concomitant]
     Active Substance: TRAMADOL HYDROCHLORIDE
     Dosage: 50 MG, 1-2 TABS EVERY 4 HRS
     Route: 065
     Dates: start: 20070809
  87. ULTRAM [Concomitant]
     Active Substance: TRAMADOL HYDROCHLORIDE
     Dosage: 50 MG, Q4H
     Route: 065
     Dates: start: 20080409
  88. ULTRAM [Concomitant]
     Active Substance: TRAMADOL HYDROCHLORIDE
     Dosage: 50 MG, Q4H
     Route: 065
     Dates: start: 20090511
  89. HALCION [Concomitant]
     Active Substance: TRIAZOLAM
     Dosage: 0.25 MG, ONE TAB AT HS
     Route: 065
     Dates: start: 20071002
  90. RELAFEN [Concomitant]
     Active Substance: NABUMETONE
     Dosage: 500 MG, UNK
     Route: 065
     Dates: start: 20080114
  91. RELAFEN [Concomitant]
     Active Substance: NABUMETONE
     Dosage: 500 MG, UNK
     Route: 065
     Dates: start: 20080317
  92. CYMBALTA [Concomitant]
     Active Substance: DULOXETINE HYDROCHLORIDE
     Indication: PRODUCT USED FOR UNKNOWN INDICATION
     Dosage: 60 MG, QD
     Route: 065
     Dates: start: 20071016
  93. OXYCODONE HYDROCHLORIDE (SIMILAR TO NDA 22-272) [Suspect]
     Active Substance: OXYCODONE HYDROCHLORIDE
     Dosage: 30 MG, 1-2 TAB EVERY 3 HRS
     Route: 048
     Dates: start: 20170528
  94. OXYCODONE HYDROCHLORIDE (SIMILAR TO NDA 22-272) [Suspect]
     Active Substance: OXYCODONE HYDROCHLORIDE
     Dosage: 30 MG, Q2H
     Route: 048
     Dates: start: 20090112
  95. MS CONTIN [Suspect]
     Active Substance: MORPHINE SULFATE
     Indication: PRODUCT USED FOR UNKNOWN INDICATION
     Dosage: 30 MG, EVERY 8 HRS
     Route: 048
     Dates: start: 20070412
  96. MS CONTIN [Suspect]
     Active Substance: MORPHINE SULFATE
     Dosage: 100 MG, QID
     Route: 048
     Dates: start: 20070626
  97. OXYCONTIN [Suspect]
     Active Substance: OXYCODONE HYDROCHLORIDE
     Dosage: 80 MG, TID
     Route: 048
     Dates: start: 20080609
  98. ULTRAM [Concomitant]
     Active Substance: TRAMADOL HYDROCHLORIDE
     Dosage: 50 MG, Q4H
     Route: 065
     Dates: start: 20080128
  99. HALCION [Concomitant]
     Active Substance: TRIAZOLAM
     Indication: PRODUCT USED FOR UNKNOWN INDICATION
     Dosage: 0.25 MG, ONE TABLET AT HALF-STRENGTH
     Route: 065
     Dates: start: 20070427
  100. HALCION [Concomitant]
     Active Substance: TRIAZOLAM
     Dosage: 0.25 MG, ONE TAB AT HS
     Route: 065
     Dates: start: 20070521
  101. LODINE [Concomitant]
     Active Substance: ETODOLAC
     Indication: PRODUCT USED FOR UNKNOWN INDICATION
     Dosage: 400 MG, TID
     Route: 065
  102. MSIR [Concomitant]
     Active Substance: MORPHINE SULFATE
     Indication: PRODUCT USED FOR UNKNOWN INDICATION
     Dosage: 30 MG, 3 TABS EVERY 3 HRS
     Route: 048
     Dates: start: 20070626
  103. ZANTAC [Concomitant]
     Active Substance: RANITIDINE HYDROCHLORIDE
     Dosage: 300 MG, BID
     Route: 065
     Dates: start: 20080114
  104. CARAFATE [Concomitant]
     Active Substance: SUCRALFATE
     Indication: PRODUCT USED FOR UNKNOWN INDICATION
     Dosage: UNK
     Route: 065
     Dates: start: 20070802
  105. FIORICET [Concomitant]
     Active Substance: ACETAMINOPHEN\BUTALBITAL\CAFFEINE
     Dosage: UNK,1-2 TAB AT HS
     Route: 065
     Dates: start: 20071029
  106. FENTANYL. [Concomitant]
     Active Substance: FENTANYL
     Dosage: 100 MCG, PER HR
     Route: 062
     Dates: start: 20090202
  107. ADDERALL [Concomitant]
     Active Substance: AMPHETAMINE ASPARTATE\AMPHETAMINE SULFATE\DEXTROAMPHETAMINE SACCHARATE\DEXTROAMPHETAMINE SULFATE
     Indication: PRODUCT USED FOR UNKNOWN INDICATION
     Dosage: 20 MG, UNK
     Route: 065
     Dates: start: 20090901
  108. OXYCODONE HYDROCHLORIDE (SIMILAR TO NDA 22-272) [Suspect]
     Active Substance: OXYCODONE HYDROCHLORIDE
     Dosage: 30 MG, 1-2 TABS EVERY 2H
     Route: 048
     Dates: start: 20081219
  109. OXYCODONE HYDROCHLORIDE (SIMILAR TO NDA 22-272) [Suspect]
     Active Substance: OXYCODONE HYDROCHLORIDE
     Dosage: 30 MG, Q2H
     Route: 048
     Dates: start: 20090202
  110. MS CONTIN [Suspect]
     Active Substance: MORPHINE SULFATE
     Dosage: 60 MG, Q6H
     Route: 048
     Dates: start: 20071221
  111. MS CONTIN [Suspect]
     Active Substance: MORPHINE SULFATE
     Dosage: 100 MG, Q3H
     Route: 048
     Dates: start: 20080225
  112. OXYCONTIN [Suspect]
     Active Substance: OXYCODONE HYDROCHLORIDE
     Dosage: 40 MG, TID
     Route: 048
     Dates: start: 20090316
  113. ULTRAM [Concomitant]
     Active Substance: TRAMADOL HYDROCHLORIDE
     Dosage: 50 MG, Q4H
     Route: 065
     Dates: start: 20080512
  114. ULTRAM [Concomitant]
     Active Substance: TRAMADOL HYDROCHLORIDE
     Dosage: 50 MG, Q4H
     Route: 065
     Dates: start: 20190511
  115. HALCION [Concomitant]
     Active Substance: TRIAZOLAM
     Dosage: 0.25 MG, ONE TAB AT HS
     Route: 065
     Dates: start: 20070709
  116. MSIR [Concomitant]
     Active Substance: MORPHINE SULFATE
     Dosage: 30 MG, 2-4 TABS EVERY 3H
     Route: 065
     Dates: start: 20090112
  117. MSIR [Concomitant]
     Active Substance: MORPHINE SULFATE
     Dosage: 30 MG, Q3- 4H
     Route: 065
     Dates: start: 20090202
  118. FENTANYL. [Concomitant]
     Active Substance: FENTANYL
     Indication: PRODUCT USED FOR UNKNOWN INDICATION
     Dosage: UNK, Q48H
     Route: 062
     Dates: start: 20080317

REACTIONS (6)
  - Suicidal ideation [Unknown]
  - Drug dependence [Unknown]
  - Drug ineffective [Unknown]
  - Suicide attempt [Unknown]
  - Intentional product use issue [Unknown]
  - Drug abuse [Unknown]

NARRATIVE: CASE EVENT DATE: 20060322
